APPROVED DRUG PRODUCT: PYRIDOSTIGMINE BROMIDE
Active Ingredient: PYRIDOSTIGMINE BROMIDE
Strength: 60MG
Dosage Form/Route: TABLET;ORAL
Application: A205650 | Product #001 | TE Code: AB
Applicant: ZYDUS PHARMACEUTICALS USA INC
Approved: Jun 22, 2015 | RLD: No | RS: No | Type: RX